FAERS Safety Report 11910592 (Version 1)
Quarter: 2016Q1

REPORT INFORMATION
  Report Type: Spontaneous
  Country: US (occurrence: None)
  Receive Date: 20160111
  Receipt Date: 20160111
  Transmission Date: 20160526
  Serious: Yes (Death, Hospitalization)
  Sender: FDA-Public Use
  Company Number: None

PATIENT
  Age: 74 Year
  Sex: Female

DRUGS (2)
  1. ACTHAR [Suspect]
     Active Substance: CORTICOTROPIN
     Indication: HODGKIN^S DISEASE NODULAR SCLEROSIS
     Dosage: 80 UNITS/ML 1ML
     Route: 058
     Dates: start: 20151117, end: 20151206
  2. ACTHAR [Suspect]
     Active Substance: CORTICOTROPIN
     Indication: HODGKIN^S DISEASE
     Dosage: 80 UNITS/ML 1ML
     Route: 058
     Dates: start: 20151117, end: 20151206

REACTIONS (1)
  - Seizure [None]

NARRATIVE: CASE EVENT DATE: 20151216
